FAERS Safety Report 25646343 (Version 2)
Quarter: 2025Q3

REPORT INFORMATION
  Report Type: Spontaneous
  Country: US (occurrence: US)
  Receive Date: 20250805
  Receipt Date: 20250909
  Transmission Date: 20251021
  Serious: No
  Sender: SHIONOGI
  Company Number: US-shionogi-202500007703

PATIENT
  Sex: Female

DRUGS (30)
  1. CEFIDEROCOL [Suspect]
     Active Substance: CEFIDEROCOL
     Indication: Pseudomonas infection
  2. CEFIDEROCOL [Suspect]
     Active Substance: CEFIDEROCOL
     Indication: Enterococcal infection
  3. CEFIDEROCOL [Suspect]
     Active Substance: CEFIDEROCOL
     Indication: Multiple-drug resistance
  4. CEFIDEROCOL [Suspect]
     Active Substance: CEFIDEROCOL
     Indication: Klebsiella infection
  5. CEFIDEROCOL [Suspect]
     Active Substance: CEFIDEROCOL
     Indication: Drug resistance
  6. CEFIDEROCOL [Suspect]
     Active Substance: CEFIDEROCOL
     Indication: Sepsis
  7. ERAVACYCLINE [Suspect]
     Active Substance: ERAVACYCLINE
     Indication: Pseudomonas infection
  8. ERAVACYCLINE [Suspect]
     Active Substance: ERAVACYCLINE
     Indication: Enterococcal infection
  9. ERAVACYCLINE [Suspect]
     Active Substance: ERAVACYCLINE
     Indication: Multiple-drug resistance
  10. ERAVACYCLINE [Suspect]
     Active Substance: ERAVACYCLINE
     Indication: Klebsiella infection
  11. ERAVACYCLINE [Suspect]
     Active Substance: ERAVACYCLINE
     Indication: Drug resistance
  12. ERAVACYCLINE [Suspect]
     Active Substance: ERAVACYCLINE
     Indication: Sepsis
  13. DAPTOMYCIN [Suspect]
     Active Substance: DAPTOMYCIN
     Indication: Pseudomonas infection
  14. DAPTOMYCIN [Suspect]
     Active Substance: DAPTOMYCIN
     Indication: Enterococcal infection
  15. DAPTOMYCIN [Suspect]
     Active Substance: DAPTOMYCIN
     Indication: Multiple-drug resistance
  16. DAPTOMYCIN [Suspect]
     Active Substance: DAPTOMYCIN
     Indication: Klebsiella infection
  17. DAPTOMYCIN [Suspect]
     Active Substance: DAPTOMYCIN
     Indication: Drug resistance
  18. DAPTOMYCIN [Suspect]
     Active Substance: DAPTOMYCIN
     Indication: Sepsis
  19. MICAFUNGIN [Suspect]
     Active Substance: MICAFUNGIN SODIUM
     Indication: Pseudomonas infection
  20. MICAFUNGIN [Suspect]
     Active Substance: MICAFUNGIN SODIUM
     Indication: Enterococcal infection
  21. MICAFUNGIN [Suspect]
     Active Substance: MICAFUNGIN SODIUM
     Indication: Multiple-drug resistance
  22. MICAFUNGIN [Suspect]
     Active Substance: MICAFUNGIN SODIUM
     Indication: Klebsiella infection
  23. MICAFUNGIN [Suspect]
     Active Substance: MICAFUNGIN SODIUM
     Indication: Drug resistance
  24. MICAFUNGIN [Suspect]
     Active Substance: MICAFUNGIN SODIUM
     Indication: Sepsis
  25. FLUCONAZOLE [Suspect]
     Active Substance: FLUCONAZOLE
     Indication: Pseudomonas infection
  26. FLUCONAZOLE [Suspect]
     Active Substance: FLUCONAZOLE
     Indication: Enterococcal infection
  27. FLUCONAZOLE [Suspect]
     Active Substance: FLUCONAZOLE
     Indication: Multiple-drug resistance
  28. FLUCONAZOLE [Suspect]
     Active Substance: FLUCONAZOLE
     Indication: Klebsiella infection
  29. FLUCONAZOLE [Suspect]
     Active Substance: FLUCONAZOLE
     Indication: Drug resistance
  30. FLUCONAZOLE [Suspect]
     Active Substance: FLUCONAZOLE
     Indication: Sepsis

REACTIONS (8)
  - Drug ineffective [Unknown]
  - Drug resistance [Unknown]
  - Pyrexia [Unknown]
  - Chills [Unknown]
  - Enterococcal infection [Unknown]
  - Candida infection [Unknown]
  - Abscess [Unknown]
  - Peritonitis [Unknown]
